FAERS Safety Report 10186362 (Version 1)
Quarter: 2014Q2

REPORT INFORMATION
  Report Type: Spontaneous
  Country: US (occurrence: US)
  Receive Date: 20140521
  Receipt Date: 20140521
  Transmission Date: 20141212
  Serious: No
  Sender: FDA-Public Use
  Company Number: US-ASTRAZENECA-2014SE05917

PATIENT
  Age: 68 Year
  Sex: Female
  Weight: 49.9 kg

DRUGS (2)
  1. PULMICORT FLEXHALER [Suspect]
     Indication: PULMONARY HYPERTENSION
     Dosage: 90 MCG, ONE PUFF TWO TIMES A DAY
     Route: 055
     Dates: start: 20131015
  2. MEDICATIONS [Concomitant]

REACTIONS (5)
  - Dyspnoea [Unknown]
  - Device misuse [Unknown]
  - Intentional product misuse [Unknown]
  - Drug ineffective for unapproved indication [Unknown]
  - Off label use [Unknown]
